FAERS Safety Report 5781397-7 (Version None)
Quarter: 2008Q2

REPORT INFORMATION
  Report Type: 
  Country: None (occurrence: None)
  Receive Date: 20080623
  Receipt Date: 20080610
  Transmission Date: 20081010
  Serious: Yes (Hospitalization)
  Sender: FDA-Public Use
  Company Number: JP-NOVOPROD-275899

PATIENT
  Sex: Male

DRUGS (19)
  1. NOVORAPID 30 MIX CHU FLEXPEN [Suspect]
     Indication: TYPE 2 DIABETES MELLITUS
     Dosage: 12 U, QD
     Route: 058
     Dates: start: 20070406, end: 20071025
  2. NOVOLIN R [Suspect]
     Indication: TYPE 2 DIABETES MELLITUS
     Dosage: 32 IU, QD
     Dates: start: 20071221
  3. NOVOLIN R [Suspect]
     Dosage: 27 IU, QD
     Route: 058
  4. NOVOLIN R [Suspect]
     Dosage: 26 IU, QD
     Route: 058
     Dates: start: 20080206
  5. NOVOLIN N [Suspect]
     Indication: TYPE 2 DIABETES MELLITUS
     Dosage: 10 IU, QD
     Dates: start: 20071224
  6. NOVOLIN N [Suspect]
     Dosage: 7 IU, QD
     Route: 058
  7. NOVOLIN N [Suspect]
     Dosage: 3 IU, QD
     Route: 058
     Dates: start: 20080206
  8. HUMALOG MIX 25 [Suspect]
     Indication: TYPE 2 DIABETES MELLITUS
     Dosage: 14 IU, QD
     Route: 058
     Dates: start: 20071026, end: 20071220
  9. ASPIRIN [Concomitant]
     Indication: ANGINA PECTORIS
     Dosage: 100 MG, QD
     Route: 048
     Dates: start: 20080408
  10. LASIX [Concomitant]
     Indication: ANGINA PECTORIS
     Dosage: 20 MG, QD
     Route: 048
     Dates: start: 20080216
  11. HERBESSER [Concomitant]
     Indication: ANGINA PECTORIS
     Dosage: 200 MG, QD
     Route: 048
     Dates: start: 20080216
  12. KETAS [Concomitant]
     Dosage: 30 MG, QD
     Route: 048
     Dates: start: 20050329
  13. JUVELA N [Concomitant]
     Dosage: 600 MG, QD
     Route: 048
     Dates: start: 20050329
  14. SELBEX [Concomitant]
     Indication: GASTRITIS
     Dosage: 1.5 MG, QD
     Route: 048
     Dates: start: 20050912
  15. PAXIL [Concomitant]
     Indication: DEPRESSION
     Dosage: 10 MG, QD
     Route: 048
     Dates: start: 20051128
  16. LOCHOL                             /00638501/ [Concomitant]
     Indication: HYPERLIPIDAEMIA
     Dosage: 20 MG, QD
     Route: 048
     Dates: start: 20050715
  17. DEPAS [Concomitant]
     Indication: DEPRESSION
     Dosage: .5 MG, QD
     Route: 048
     Dates: start: 20050516
  18. PURSENNID                          /00142207/ [Concomitant]
     Indication: CONSTIPATION
     Dosage: 24 MG, QD
     Route: 048
     Dates: start: 20080219
  19. SYMMETREL [Concomitant]
     Indication: CEREBRAL INFARCTION
     Dosage: .5 G, QD
     Route: 048
     Dates: start: 20051128

REACTIONS (2)
  - ANTI-INSULIN ANTIBODY INCREASED [None]
  - BLOOD GLUCOSE INCREASED [None]
